FAERS Safety Report 8270239-6 (Version None)
Quarter: 2012Q2

REPORT INFORMATION
  Report Type: 
  Country: None (occurrence: None)
  Receive Date: 20120410
  Receipt Date: 20120406
  Transmission Date: 20120825
  Serious: Yes (Hospitalization)
  Sender: FDA-Public Use
  Company Number: FR-SANOFI-AVENTIS-2012SA018505

PATIENT
  Age: 86 Year
  Sex: Female
  Weight: 74 kg

DRUGS (4)
  1. CORDARONE [Suspect]
     Dosage: STRENGTH: 200 MG
     Route: 048
     Dates: end: 20110624
  2. MULTAQ [Suspect]
     Dosage: STRENGTH: 400 MG
     Route: 048
     Dates: start: 20110624, end: 20111003
  3. PREVISCAN [Concomitant]
     Route: 048
  4. BISOPROLOL FUMARATE AND HYDROCHLOROTHIAZIDE [Concomitant]
     Route: 048

REACTIONS (1)
  - LUNG DISORDER [None]
